FAERS Safety Report 6273139-6 (Version None)
Quarter: 2009Q2

REPORT INFORMATION
  Report Type: 
  Country: None (occurrence: None)
  Receive Date: 20090618
  Receipt Date: 20080417
  Transmission Date: 20091009
  Serious: No
  Sender: FDA-Public Use
  Company Number: WAES 0804USA03906

PATIENT
  Sex: Female

DRUGS (3)
  1. COZAAR [Suspect]
     Dosage: 25 MG/DAILY/PO
     Route: 048
  2. LASIX [Concomitant]
  3. [THERAPY UNSPECIFIED] [Concomitant]

REACTIONS (1)
  - ADVERSE EVENT [None]
